FAERS Safety Report 15743079 (Version 1)
Quarter: 2018Q4

REPORT INFORMATION
  Report Type: Report from Study
  Country: None (occurrence: DE)
  Receive Date: 20181220
  Receipt Date: 20181220
  Transmission Date: 20190205
  Serious: Yes (Death, Hospitalization, Other)
  Sender: FDA-Public Use
  Company Number: DE-ABBVIE-18K-062-2597616-00

PATIENT
  Age: 51 Year
  Sex: Male
  Weight: 81 kg

DRUGS (1)
  1. HUMIRA [Suspect]
     Active Substance: ADALIMUMAB
     Indication: CROHN^S DISEASE
     Route: 058
     Dates: start: 20131113, end: 2015

REACTIONS (5)
  - Brain neoplasm [Not Recovered/Not Resolved]
  - Crohn^s disease [Not Recovered/Not Resolved]
  - Blood count abnormal [Recovered/Resolved]
  - Abdominal abscess [Fatal]
  - Blood count abnormal [Unknown]

NARRATIVE: CASE EVENT DATE: 2015
